FAERS Safety Report 8364583-1 (Version None)
Quarter: 2012Q2

REPORT INFORMATION
  Report Type: 
  Country: None (occurrence: None)
  Receive Date: 20120516
  Receipt Date: 20120504
  Transmission Date: 20120825
  Serious: Yes (Other)
  Sender: FDA-Public Use
  Company Number: CA-ROCHE-1066818

PATIENT
  Sex: Male
  Weight: 78.088 kg

DRUGS (5)
  1. APO-PROCHLORAZINE [Concomitant]
  2. AVASTIN [Suspect]
     Indication: GLIOBLASTOMA
     Dosage: THERAPY WAS ONGOING
     Route: 042
     Dates: start: 20120104
  3. DEXAMETHASONE [Concomitant]
  4. KEPPRA [Concomitant]
  5. BISACODIL [Concomitant]

REACTIONS (2)
  - CONVULSION [None]
  - NEOPLASM [None]
